FAERS Safety Report 9128732 (Version 1)
Quarter: 2013Q1

REPORT INFORMATION
  Report Type: Spontaneous
  Country: US (occurrence: US)
  Receive Date: 20130228
  Receipt Date: 20130228
  Transmission Date: 20140127
  Serious: No
  Sender: FDA-Public Use
  Company Number: US-ABBOTT-13P-163-1045834-00

PATIENT
  Age: 45 Year
  Sex: Male

DRUGS (3)
  1. ANDROGEL [Suspect]
     Indication: PRODUCT USED FOR UNKNOWN INDICATION
     Dosage: 4 PUMPS DAILY
     Dates: start: 201212
  2. TESTIM [Suspect]
     Indication: BLOOD TESTOSTERONE DECREASED
     Route: 062
  3. TESTIM [Suspect]
     Dosage: 2 TUBES DAILY
     Route: 062

REACTIONS (1)
  - Drug ineffective [Unknown]
